FAERS Safety Report 8784778 (Version 1)
Quarter: 2012Q4

REPORT INFORMATION
  Report Type: Spontaneous
  Country: US (occurrence: None)
  Receive Date: 20120907
  Receipt Date: 20120907
  Transmission Date: 20130627
  Serious: Yes (Hospitalization, Other)
  Sender: FDA-Public Use
  Company Number: None

PATIENT
  Age: 21 Year
  Sex: Male

DRUGS (2)
  1. DAYTRANA [Suspect]
     Indication: ATTENTION DEFICIT DISORDER
  2. DAYTRANA [Suspect]
     Indication: ATTENTION DEFICIT-HYPERACTIVITY DISORDER

REACTIONS (2)
  - Dystonia [None]
  - Aggression [None]
